FAERS Safety Report 15641726 (Version 6)
Quarter: 2019Q2

REPORT INFORMATION
  Report Type: Spontaneous
  Country: DE (occurrence: DE)
  Receive Date: 20181121
  Receipt Date: 20190620
  Transmission Date: 20190711
  Serious: Yes (Hospitalization, Other)
  Sender: FDA-Public Use
  Company Number: PHHY2018DE157686

PATIENT
  Sex: Female
  Weight: 94 kg

DRUGS (15)
  1. IBUPROFEN. [Suspect]
     Active Substance: IBUPROFEN
     Indication: PAIN
     Dosage: 600 MG, BID (IN THE MORNINGS AND IN THE EVENINGS)
     Route: 065
  2. DEKRISTOL [Concomitant]
     Active Substance: CHOLECALCIFEROL
     Indication: PRODUCT USED FOR UNKNOWN INDICATION
     Dosage: 20000 IU, Q2W
     Route: 065
  3. VALSARTAN 1 A PHARMA [Suspect]
     Active Substance: VALSARTAN
     Indication: PRODUCT USED FOR UNKNOWN INDICATION
     Dosage: 80 MG, UNK
     Route: 065
     Dates: start: 2003
  4. ESCITALOPRAM [Concomitant]
     Active Substance: ESCITALOPRAM OXALATE
     Dosage: 10 MG, QD (IN THE MORNINGS)
     Route: 065
  5. L-THYROXIN [Concomitant]
     Active Substance: LEVOTHYROXINE SODIUM
     Indication: PRODUCT USED FOR UNKNOWN INDICATION
     Dosage: UNK
     Route: 065
     Dates: start: 1992, end: 2019
  6. L-THYROXIN [Concomitant]
     Active Substance: LEVOTHYROXINE SODIUM
     Dosage: 80 UG, QD
     Route: 065
  7. OMEPRAZOLE. [Concomitant]
     Active Substance: OMEPRAZOLE
     Indication: PRODUCT USED FOR UNKNOWN INDICATION
     Dosage: 20 MG, QD (IN THE MORNINGS)
     Route: 065
  8. VALSARTAN 1 A PHARMA [Suspect]
     Active Substance: VALSARTAN
     Dosage: 80 MG, BID (1X IN THE MORNINGS, 1X IN THE EVENINGS)
     Route: 065
     Dates: start: 2010, end: 201806
  9. IBUPROFEN. [Suspect]
     Active Substance: IBUPROFEN
     Indication: MENTAL DISORDER
  10. VESIKUR [Concomitant]
     Active Substance: SOLIFENACIN SUCCINATE
     Indication: MICTURITION URGENCY
     Dosage: UNK
     Route: 065
     Dates: end: 2018
  11. L-THYROXIN [Concomitant]
     Active Substance: LEVOTHYROXINE SODIUM
     Dosage: 37.5 UG, QD (HALF OF 75 MG IN THE MORNINGS)
     Route: 065
  12. ESCITALOPRAM [Concomitant]
     Active Substance: ESCITALOPRAM OXALATE
     Dosage: 10 MG, QD (IN THE AFTERNOON)
     Route: 065
     Dates: start: 2017
  13. L-THYROXIN [Concomitant]
     Active Substance: LEVOTHYROXINE SODIUM
     Dosage: 50 UG, QD (IN THE MORNINGS)
     Route: 065
  14. IBUPROFEN. [Suspect]
     Active Substance: IBUPROFEN
     Indication: SOMATIC SYMPTOM DISORDER
  15. ESCITALOPRAM [Concomitant]
     Active Substance: ESCITALOPRAM OXALATE
     Indication: DEPRESSION
     Dosage: 20 MG, UNK
     Route: 065
     Dates: start: 2012, end: 2017

REACTIONS (62)
  - Gastrointestinal stromal tumour [Not Recovered/Not Resolved]
  - Sensitivity to weather change [Not Recovered/Not Resolved]
  - Incontinence [Not Recovered/Not Resolved]
  - Disturbance in attention [Unknown]
  - Effusion [Unknown]
  - Anxiety disorder [Recovering/Resolving]
  - Bladder metaplasia [Unknown]
  - Pain [Recovering/Resolving]
  - Skin cancer [Not Recovered/Not Resolved]
  - Nerve injury [Unknown]
  - Gait disturbance [Recovering/Resolving]
  - Sjogren^s syndrome [Unknown]
  - Food allergy [Not Recovered/Not Resolved]
  - Melanocytic naevus [Not Recovered/Not Resolved]
  - Dizziness [Unknown]
  - Malignant melanoma [Not Recovered/Not Resolved]
  - Poor quality sleep [Recovering/Resolving]
  - Pneumonia [Unknown]
  - Muscle spasms [Not Recovered/Not Resolved]
  - Feeling abnormal [Not Recovered/Not Resolved]
  - Arthropathy [Unknown]
  - Back pain [Unknown]
  - Fall [Unknown]
  - Post procedural hypothyroidism [Unknown]
  - Gastric disorder [Not Recovered/Not Resolved]
  - Eye disorder [Not Recovered/Not Resolved]
  - Visual impairment [Not Recovered/Not Resolved]
  - Drug hypersensitivity [Not Recovered/Not Resolved]
  - Hypertonia [Unknown]
  - Feeling hot [Unknown]
  - Neuropathy peripheral [Unknown]
  - Acute kidney injury [Unknown]
  - Pain in extremity [Recovering/Resolving]
  - Arthralgia [Recovering/Resolving]
  - Decreased appetite [Unknown]
  - Stress [Recovering/Resolving]
  - Headache [Unknown]
  - Micturition urgency [Unknown]
  - Muscle tightness [Unknown]
  - Asthenia [Unknown]
  - Fear [Recovering/Resolving]
  - Asthenia [Not Recovered/Not Resolved]
  - Cardiovascular disorder [Not Recovered/Not Resolved]
  - Depression [Recovering/Resolving]
  - Osteoarthritis [Unknown]
  - Liver function test abnormal [Not Recovered/Not Resolved]
  - Quality of life decreased [Unknown]
  - Bladder disorder [Unknown]
  - Obesity [Unknown]
  - Blood creatinine abnormal [Not Recovered/Not Resolved]
  - Asthma [Unknown]
  - Urinary tract infection [Unknown]
  - Abdominal pain lower [Unknown]
  - Fibromyalgia [Not Recovered/Not Resolved]
  - Somatic symptom disorder [Recovering/Resolving]
  - Musculoskeletal stiffness [Unknown]
  - Myalgia [Unknown]
  - Mental disorder [Recovering/Resolving]
  - Rib fracture [Unknown]
  - Hyperacusis [Not Recovered/Not Resolved]
  - Abdominal pain upper [Not Recovered/Not Resolved]
  - Pruritus [Unknown]

NARRATIVE: CASE EVENT DATE: 2003
